FAERS Safety Report 5799224-0 (Version None)
Quarter: 2008Q3

REPORT INFORMATION
  Report Type: 
  Country: None (occurrence: None)
  Receive Date: 20080701
  Receipt Date: 20080624
  Transmission Date: 20090109
  Serious: Yes (Hospitalization)
  Sender: FDA-Public Use
  Company Number: CHPA2008US10514

PATIENT
  Age: 49 Year
  Sex: Female

DRUGS (1)
  1. EXCEDRIN (MIGRAINE) [Suspect]
     Indication: HEADACHE
     Dosage: 1 DF, QD, ORAL
     Route: 048
     Dates: start: 20080617, end: 20080621

REACTIONS (4)
  - CRYING [None]
  - DEPRESSION [None]
  - GASTRIC ULCER [None]
  - HAEMOGLOBIN DECREASED [None]
